FAERS Safety Report 5553619-9 (Version None)
Quarter: 2007Q4

REPORT INFORMATION
  Report Type: 
  Country: None (occurrence: None)
  Receive Date: 20071213
  Receipt Date: 20071206
  Transmission Date: 20080405
  Serious: Yes (Other)
  Sender: FDA-Public Use
  Company Number: PHBS2007JP16727

PATIENT
  Age: 60 Year
  Sex: Male

DRUGS (2)
  1. TEGRETOL [Suspect]
     Indication: PSYCHIATRIC SYMPTOM
     Dosage: 200MG/D
     Route: 048
  2. TEGRETOL [Suspect]
     Dosage: 100 MG, BID
     Route: 048
     Dates: start: 20070607

REACTIONS (4)
  - C-REACTIVE PROTEIN INCREASED [None]
  - IMMUNOGLOBULINS DECREASED [None]
  - LYMPHOCYTE STIMULATION TEST POSITIVE [None]
  - PYREXIA [None]
